FAERS Safety Report 9479828 (Version 1)
Quarter: 2013Q3

REPORT INFORMATION
  Report Type: Spontaneous
  Country: US (occurrence: US)
  Receive Date: 20130828
  Receipt Date: 20130828
  Transmission Date: 20140515
  Serious: Yes (Hospitalization)
  Sender: FDA-Public Use
  Company Number: US-AMGEN-KDL052291

PATIENT
  Age: 40 Year
  Sex: 0

DRUGS (2)
  1. ENBREL [Suspect]
     Indication: RHEUMATOID ARTHRITIS
     Dosage: 25 MG, 2 TIMES/WK
     Route: 058
     Dates: start: 20000601
  2. HYDROXYCHLOROQUINE PHOSPHATE [Concomitant]

REACTIONS (5)
  - Hypoxia [Unknown]
  - Pneumonia [Unknown]
  - Cellulitis [Unknown]
  - Arthritis infective [Unknown]
  - Neuropathy peripheral [Unknown]
